FAERS Safety Report 8516187-5 (Version None)
Quarter: 2012Q3

REPORT INFORMATION
  Report Type: 
  Country: None (occurrence: None)
  Receive Date: 20120717
  Receipt Date: 20120716
  Transmission Date: 20120928
  Serious: Yes (Other)
  Sender: FDA-Public Use
  Company Number: US-ROCHE-548695

PATIENT
  Sex: Male
  Weight: 99.8 kg

DRUGS (9)
  1. ACCUTANE [Suspect]
     Route: 065
     Dates: start: 19950602, end: 19951001
  2. ACCUTANE [Suspect]
     Route: 065
     Dates: start: 19961007, end: 19970620
  3. ACCUTANE [Suspect]
     Indication: ACNE
     Dosage: 40 MG ALTERNATING WITH 80 MG EVERY OTHER DAY
     Route: 065
     Dates: start: 19950505, end: 19950601
  4. KENALOG [Concomitant]
  5. ACCUTANE [Suspect]
     Route: 065
     Dates: start: 19980220, end: 19980322
  6. ACCUTANE [Suspect]
     Dosage: 80 MG ALTERNATING WITH 120 MG EVERY OTHER DAY
     Route: 065
     Dates: start: 19980323, end: 19980423
  7. ACCUTANE [Suspect]
     Route: 065
     Dates: start: 19980424, end: 19980525
  8. ACCUTANE [Suspect]
     Dosage: 40 MG ALTERNATING WITH 80 MG EVERY OTHER DAY
     Route: 065
     Dates: start: 19980526, end: 19980623
  9. ACCUTANE [Suspect]
     Route: 065
     Dates: start: 19980624, end: 19980827

REACTIONS (12)
  - COLITIS ULCERATIVE [None]
  - COLONIC POLYP [None]
  - PROCTITIS [None]
  - DEPRESSION [None]
  - CROHN'S DISEASE [None]
  - LIP DRY [None]
  - BLOOD TRIGLYCERIDES INCREASED [None]
  - ACNE [None]
  - INFLAMMATORY BOWEL DISEASE [None]
  - HAEMORRHOIDS [None]
  - ARTHRALGIA [None]
  - ILL-DEFINED DISORDER [None]
